FAERS Safety Report 15921688 (Version 2)
Quarter: 2019Q1

REPORT INFORMATION
  Report Type: Spontaneous
  Country: US (occurrence: US)
  Receive Date: 20190205
  Receipt Date: 20190219
  Transmission Date: 20190417
  Serious: No
  Sender: FDA-Public Use
  Company Number: US-ALLERGAN-1806383US

PATIENT
  Age: 43 Year

DRUGS (1)
  1. BOTOX COSMETIC [Suspect]
     Active Substance: ONABOTULINUMTOXINA
     Indication: SKIN WRINKLING
     Dosage: UNK UNK, SINGLE
     Route: 030

REACTIONS (6)
  - Injection site mass [Unknown]
  - Eyelid ptosis [Unknown]
  - Injection site pain [Unknown]
  - Drug ineffective [Unknown]
  - Injection site rash [Recovered/Resolved]
  - Facial paralysis [Unknown]
